FAERS Safety Report 14752997 (Version 3)
Quarter: 2018Q3

REPORT INFORMATION
  Report Type: Spontaneous
  Country: US (occurrence: US)
  Receive Date: 20180412
  Receipt Date: 20180711
  Transmission Date: 20181010
  Serious: Yes (Other)
  Sender: FDA-Public Use
  Company Number: US-PFIZER INC-2018148701

PATIENT
  Age: 50 Year
  Sex: Male

DRUGS (2)
  1. LYRICA [Suspect]
     Active Substance: PREGABALIN
     Indication: MULTIPLE SCLEROSIS
     Dosage: 200MG PER DAY
     Dates: start: 20171227, end: 20180227
  2. LYRICA [Suspect]
     Active Substance: PREGABALIN
     Indication: HYPOAESTHESIA
     Dosage: 100MG PER DAY (50MG CAPSULE IN THE MORNING AND IN THE EVENING)
     Dates: start: 20161126, end: 20171226

REACTIONS (16)
  - Dysuria [Not Recovered/Not Resolved]
  - Intervertebral disc protrusion [Unknown]
  - Hypertension [Unknown]
  - Toxicity to various agents [Unknown]
  - Product use in unapproved indication [Unknown]
  - Renal failure [Not Recovered/Not Resolved]
  - Small intestine ulcer [Not Recovered/Not Resolved]
  - Abdominal distension [Not Recovered/Not Resolved]
  - Renal cyst [Not Recovered/Not Resolved]
  - Hepatic cyst [Not Recovered/Not Resolved]
  - Oedema peripheral [Unknown]
  - Peripheral swelling [Unknown]
  - Hyperaesthesia [Recovered/Resolved]
  - Diplopia [Recovered/Resolved with Sequelae]
  - Peroneal nerve palsy [Recovering/Resolving]
  - Hypoaesthesia [Unknown]

NARRATIVE: CASE EVENT DATE: 20161126
